FAERS Safety Report 9242248 (Version 1)
Quarter: 2013Q2

REPORT INFORMATION
  Report Type: Spontaneous
  Country: US (occurrence: US)
  Receive Date: 20130419
  Receipt Date: 20130419
  Transmission Date: 20140414
  Serious: Yes (Other)
  Sender: FDA-Public Use
  Company Number: US-PFIZER INC-2013119266

PATIENT
  Age: 39 Year
  Sex: Female

DRUGS (1)
  1. ZIPRASIDONE HCL [Suspect]
     Dosage: 60 MG, 2X/DAY

REACTIONS (2)
  - Neuroleptic malignant syndrome [Recovering/Resolving]
  - Renal failure acute [Recovering/Resolving]
